FAERS Safety Report 6596113-9 (Version None)
Quarter: 2010Q1

REPORT INFORMATION
  Report Type: 
  Country: None (occurrence: None)
  Receive Date: 20100223
  Receipt Date: 20100211
  Transmission Date: 20100710
  Serious: Yes (Other)
  Sender: FDA-Public Use
  Company Number: GB-PFIZER INC-2009235664

PATIENT
  Age: 39 Year
  Sex: Male

DRUGS (2)
  1. ZYVOX [Suspect]
     Indication: INFECTION
     Dosage: 600 MG, 2X/DAY
  2. TEICOPLANIN [Concomitant]

REACTIONS (3)
  - FEELING ABNORMAL [None]
  - PSYCHOTIC BEHAVIOUR [None]
  - PSYCHOTIC DISORDER [None]
